FAERS Safety Report 9615938 (Version 3)
Quarter: 2013Q4

REPORT INFORMATION
  Report Type: Spontaneous
  Country: FR (occurrence: FR)
  Receive Date: 20131011
  Receipt Date: 20131227
  Transmission Date: 20140711
  Serious: Yes (Hospitalization)
  Sender: FDA-Public Use
  Company Number: FR-PFIZER INC-2013289232

PATIENT
  Age: 75 Year
  Sex: Male

DRUGS (8)
  1. EUPANTOL [Suspect]
     Dosage: UNK
     Route: 065
     Dates: start: 201304
  2. VANCOMYCINE [Suspect]
     Dosage: UNK
     Route: 065
     Dates: start: 201308
  3. PLAVIX [Suspect]
     Dosage: UNK
     Route: 065
     Dates: start: 201304
  4. TEMERIT [Suspect]
     Dosage: UNK
     Route: 065
     Dates: start: 201304, end: 20130905
  5. KARDEGIC [Suspect]
     Dosage: UNK
     Route: 065
     Dates: start: 201304
  6. LASILIX [Suspect]
     Dosage: UNK
     Route: 065
     Dates: start: 201308
  7. GENTAMICIN [Suspect]
     Dosage: UNK
     Route: 065
     Dates: start: 201308
  8. ORBENINE [Suspect]
     Dosage: UNK
     Route: 065
     Dates: start: 201308, end: 20130817

REACTIONS (4)
  - Dermatitis exfoliative [Unknown]
  - Eosinophilia [Recovered/Resolved]
  - Dermatitis psoriasiform [Unknown]
  - Pruritus [Unknown]
